FAERS Safety Report 9236375 (Version 1)
Quarter: 2013Q2

REPORT INFORMATION
  Report Type: Spontaneous
  Country: US (occurrence: US)
  Receive Date: 20130417
  Receipt Date: 20130417
  Transmission Date: 20140414
  Serious: Yes (Death, Other)
  Sender: FDA-Public Use
  Company Number: US-BAYER-2013-045169

PATIENT
  Age: 18 Year
  Sex: Female

DRUGS (1)
  1. BEYAZ [Suspect]
     Indication: ACNE
     Dosage: UNK
     Route: 048
     Dates: start: 201201

REACTIONS (14)
  - Thrombosis [Fatal]
  - Loss of consciousness [Fatal]
  - Cold sweat [Fatal]
  - Skin discolouration [Fatal]
  - Heart rate decreased [Fatal]
  - Brain death [Fatal]
  - Pain in extremity [None]
  - Vomiting [None]
  - Thoracic haemorrhage [Fatal]
  - Cerebral haemorrhage [Fatal]
  - Pleurisy [None]
  - Asthma [None]
  - Pain in extremity [None]
  - Lethargy [None]
